FAERS Safety Report 4357966-8 (Version None)
Quarter: 2004Q2

REPORT INFORMATION
  Report Type: 
  Country: None (occurrence: None)
  Receive Date: 20040510
  Receipt Date: 20040428
  Transmission Date: 20050107
  Serious: Yes (Disabling)
  Sender: FDA-Public Use
  Company Number: 2004-11556B-NL

PATIENT
  Age: 40 Year
  Sex: Female

DRUGS (2)
  1. MIRTAZAPINE [Suspect]
     Indication: DEPRESSION
     Dosage: 30
     Route: 048
     Dates: start: 20040301, end: 20040301
  2. HYDROXYZINE HYDROCHLORIDE [Concomitant]

REACTIONS (3)
  - ACCOMMODATION DISORDER [None]
  - VISION BLURRED [None]
  - VISUAL ACUITY REDUCED [None]
